FAERS Safety Report 4761904-3 (Version None)
Quarter: 2005Q3

REPORT INFORMATION
  Report Type: 
  Country: None (occurrence: None)
  Receive Date: 20050831
  Receipt Date: 20041124
  Transmission Date: 20060218
  Serious: Yes (Hospitalization)
  Sender: FDA-Public Use
  Company Number: 2004099575

PATIENT
  Sex: Female
  Weight: 68.9467 kg

DRUGS (10)
  1. TOLTERODINE TARTRATE [Suspect]
     Indication: URINARY INCONTINENCE
     Dosage: 4 MG (4 MG EVERY MORNING),ORAL
     Route: 048
     Dates: start: 20030101
  2. FUROSEMIDE [Concomitant]
  3. POTASSIUM CHLORIDE [Concomitant]
  4. AMLODIPINE BESYLATE [Concomitant]
  5. QUINAPRIL HCL [Concomitant]
  6. PROPACET 100 [Concomitant]
  7. ATORVASTATIN CALCIUM [Concomitant]
  8. TOCOPHERL (TOCOPHEROL) [Concomitant]
  9. GABAPENTIN [Concomitant]
  10. PYRIDOXINE HCL [Concomitant]

REACTIONS (4)
  - CONDITION AGGRAVATED [None]
  - DRUG INEFFECTIVE [None]
  - ERYTHEMA [None]
  - OEDEMA PERIPHERAL [None]
